FAERS Safety Report 20855592 (Version 1)
Quarter: 2022Q2

REPORT INFORMATION
  Report Type: Spontaneous
  Country: NL (occurrence: NL)
  Receive Date: 20220520
  Receipt Date: 20220520
  Transmission Date: 20220721
  Serious: Yes (Other)
  Sender: FDA-Public Use
  Company Number: None

PATIENT
  Age: 67 Year
  Sex: Female
  Weight: 107.9 kg

DRUGS (15)
  1. EZETIMIBE [Suspect]
     Active Substance: EZETIMIBE
     Indication: Hypercholesterolaemia
     Dosage: 10 MILLIGRAM DAILY; 1X1 TABLET , EZETIMIB TABLET 10MG / BRAND NAME NOT SPECIFIED
     Dates: start: 2022, end: 20220419
  2. PANTOPRAZOLE [Concomitant]
     Active Substance: PANTOPRAZOLE
     Dosage: 40 MG (MILLIGRAM) , PANTOPRAZOL TABLET MSR 40MG / BRAND NAME NOT SPECIFIED  , THERAPY START DATE AN
  3. DILTIAZEM [Concomitant]
     Active Substance: DILTIAZEM
     Dosage: 300 MG (MILLIGRAM) , DILTIAZEM CAPSULE MGA 300MG / BRAND NAME NOT SPECIFIED  , THERAPY START DATE AN
  4. PERINDOPRIL ERBUMINE [Concomitant]
     Active Substance: PERINDOPRIL ERBUMINE
     Dosage: 8 MG (MILLIGRAM) , PERINDOPRIL TABLET 8MG (ERBUMINE) / BRAND NAME NOT SPECIFIED  , THERAPY START DAT
  5. NITROGLYCERIN [Concomitant]
     Active Substance: NITROGLYCERIN
     Dosage: 0.4 MG/DOSE (MILLIGRAMS PER DOSE) , NITROGLYCERINE SPRAY SUBLING. 0,4MG/DO / BRAND NAME NOT SPECIFIE
  6. HYDROXOCOBALAMIN [Concomitant]
     Active Substance: HYDROXOCOBALAMIN
     Dosage: 500 UG/ML (MICROGRAM PER MILLILITER) , HYDROXOCOBALAMINE INJVLST  500UG/ML (HCL) / BRAND NAME NOT SP
  7. LEVOCETIRIZINE [Concomitant]
     Active Substance: LEVOCETIRIZINE
     Dosage: 5 MG (MILLIGRAM) , LEVOCETIRIZINE TABLET FO 5MG / BRAND NAME NOT SPECIFIED  THERAPY START DATE AND
  8. AMLODIPINE [Concomitant]
     Active Substance: AMLODIPINE BESYLATE
     Dosage: 5 MG (MILLIGRAM) , AMLODIPINE TABLET   5MG / BRAND NAME NOT SPECIFIED , THERAPY START DATE AND END D
  9. ISOSORBIDE MONONITRATE [Concomitant]
     Active Substance: ISOSORBIDE MONONITRATE
     Dosage: 100 MG (MILLIGRAM) , ISOSORBIDEMONONITRAAT CAPSULE MGA 100MG / MONO CEDOCARD RETARD CAPSULE MGA 100
  10. ASPIRIN [Concomitant]
     Active Substance: ASPIRIN
     Dosage: 80 MG (MILLIGRAM) , ACETYLSALICYLZUUR TABLET  80MG / BRAND NAME NOT SPECIFIED , THERAPY START DATE
  11. CARB 981 / HYLAN [Concomitant]
     Dosage: HYALURON/CARBOM OOGDR 0,15/0,15MG/ML (CARB 981) / HYLAN OOGDRUPPELS 0,15/0,15MG/ML MINIM 0,65ML THE
  12. SYMBICORT [Concomitant]
     Active Substance: BUDESONIDE\FORMOTEROL FUMARATE DIHYDRATE
     Dosage: BUDESONIDE/FORMOTEROL INHP  400/12UG/DO / SYMBICORT TURBUHALER INHALPDR 400/12MCG/DO  60DO , THERAP
  13. CHOLECALCIFEROL [Concomitant]
     Active Substance: CHOLECALCIFEROL
     Dosage: 5600 UNITS , COLECALCIFEROL CAPSULE   5600IE / BRAND NAME NOT SPECIFIED  , THERAPY START DATE AND EN
  14. FUROSEMIDE [Concomitant]
     Active Substance: FUROSEMIDE
     Dosage: 40 MG (MILLIGRAM) , FUROSEMIDE TABLET 40MG / BRAND NAME NOT SPECIFIED  , THERAPY START DATE AND END
  15. LEVOTHYROXINE [Concomitant]
     Active Substance: LEVOTHYROXINE
     Dosage: 100 UG (MICROGRAM) , LEVOTHYROXINE TABLET 100UG (ZUUR) / THYRAX DUOTAB TABLET 0,100MG, THERAPY START

REACTIONS (1)
  - Angina pectoris [Recovered/Resolved]

NARRATIVE: CASE EVENT DATE: 20220415
